FAERS Safety Report 6659821-7 (Version None)
Quarter: 2010Q1

REPORT INFORMATION
  Report Type: 
  Country: None (occurrence: None)
  Receive Date: 20100330
  Receipt Date: 20100323
  Transmission Date: 20100710
  Serious: Yes (Other)
  Sender: FDA-Public Use
  Company Number: US-AMGEN-QUU395597

PATIENT
  Sex: Female

DRUGS (2)
  1. ENBREL [Suspect]
     Indication: RHEUMATOID ARTHRITIS
     Route: 058
     Dates: start: 20021201, end: 20091201
  2. VITAMINS [Concomitant]

REACTIONS (6)
  - BRONCHIECTASIS [None]
  - COUGH [None]
  - MYCOBACTERIUM AVIUM COMPLEX INFECTION [None]
  - PNEUMONIA [None]
  - PULMONARY CAVITATION [None]
  - TUBERCULIN TEST POSITIVE [None]
